FAERS Safety Report 14480879 (Version 2)
Quarter: 2018Q3

REPORT INFORMATION
  Report Type: Spontaneous
  Country: JP (occurrence: JP)
  Receive Date: 20180202
  Receipt Date: 20180918
  Transmission Date: 20181010
  Serious: Yes (Hospitalization, Other)
  Sender: FDA-Public Use
  Company Number: JP-BAYER-2018-016788

PATIENT
  Age: 43 Year
  Sex: Female
  Weight: 53 kg

DRUGS (3)
  1. BETAFERON [Suspect]
     Active Substance: INTERFERON BETA-1B
     Indication: MULTIPLE SCLEROSIS
     Dosage: 9600000 UNIT DAILY
     Route: 058
     Dates: start: 20111115, end: 201709
  2. ALINAMIN F [FURSULTIAMINE HYDROCHLORIDE] [Concomitant]
     Dosage: DAILY DOSE 100 MG
     Route: 048
     Dates: start: 2011
  3. ALFAROL [Concomitant]
     Active Substance: ALFACALCIDOL
     Dosage: DAILY DOSE .5 ?G
     Route: 048
     Dates: start: 2011

REACTIONS (2)
  - Breast cancer [Not Recovered/Not Resolved]
  - Metastases to lung [None]

NARRATIVE: CASE EVENT DATE: 2016
